FAERS Safety Report 25265159 (Version 2)
Quarter: 2025Q3

REPORT INFORMATION
  Report Type: Spontaneous
  Country: US (occurrence: US)
  Receive Date: 20250502
  Receipt Date: 20250803
  Transmission Date: 20251021
  Serious: Yes (Other)
  Sender: ALEXION PHARMACEUTICALS
  Company Number: US-ASTRAZENECA-202504GLO023152US

PATIENT
  Age: 69 Year
  Sex: Female

DRUGS (1)
  1. OSIMERTINIB [Suspect]
     Active Substance: OSIMERTINIB
     Indication: Lung adenocarcinoma stage IV
     Dosage: 160 MILLIGRAM, QD
     Route: 065

REACTIONS (9)
  - Malignant neoplasm progression [Unknown]
  - Pleural effusion [Unknown]
  - Pulmonary embolism [Unknown]
  - Cytopenia [Unknown]
  - Nail disorder [Unknown]
  - Onychoclasis [Unknown]
  - Dyspnoea [Unknown]
  - Decreased appetite [Unknown]
  - Fatigue [Unknown]
